FAERS Safety Report 24530290 (Version 1)
Quarter: 2024Q4

REPORT INFORMATION
  Report Type: Spontaneous
  Country: US (occurrence: US)
  Receive Date: 20241021
  Receipt Date: 20241021
  Transmission Date: 20250114
  Serious: Yes (Hospitalization)
  Sender: AMGEN
  Company Number: US-AMGEN-USASP2024203562

PATIENT
  Age: 72 Year
  Sex: Male

DRUGS (11)
  1. PREDNISONE [Suspect]
     Active Substance: PREDNISONE
     Indication: Follicular lymphoma stage IV
     Dosage: UNK
     Route: 065
     Dates: start: 20161214
  2. RITUXIMAB [Suspect]
     Active Substance: RITUXIMAB
     Indication: Follicular lymphoma stage IV
     Dosage: UNK (CYCLE 1)
     Route: 065
     Dates: start: 20161214
  3. RITUXIMAB [Suspect]
     Active Substance: RITUXIMAB
     Dosage: UNK (CYCLE 2)
     Route: 065
     Dates: start: 20170420
  4. CYCLOPHOSPHAMIDE [Concomitant]
     Active Substance: CYCLOPHOSPHAMIDE
     Indication: Follicular lymphoma stage IV
     Dosage: UNK
     Route: 065
     Dates: start: 20161214
  5. DOXORUBICIN HYDROCHLORIDE [Concomitant]
     Active Substance: DOXORUBICIN HYDROCHLORIDE
     Indication: Follicular lymphoma stage IV
     Dosage: UNK
     Route: 065
     Dates: start: 20161214
  6. VINCRISTINE SULFATE [Concomitant]
     Active Substance: VINCRISTINE SULFATE
     Indication: Follicular lymphoma stage IV
     Dosage: UNK
     Route: 065
     Dates: start: 20161214
  7. OBINUTUZUMAB [Concomitant]
     Active Substance: OBINUTUZUMAB
     Indication: Follicular lymphoma stage IV
     Dosage: UNK
     Route: 065
     Dates: start: 20161214
  8. IFOSFAMIDE [Concomitant]
     Active Substance: IFOSFAMIDE
     Indication: Follicular lymphoma
     Dosage: UNK
     Route: 065
     Dates: start: 20170420
  9. CARBOPLATIN [Concomitant]
     Active Substance: CARBOPLATIN
     Indication: Follicular lymphoma
     Dosage: UNK
     Route: 065
     Dates: start: 20170420
  10. ETOPOSIDE PHOSPHATE [Concomitant]
     Active Substance: ETOPOSIDE PHOSPHATE
     Indication: Follicular lymphoma
     Dosage: UNK
     Route: 065
     Dates: start: 20170420
  11. IDELALISIB [Concomitant]
     Active Substance: IDELALISIB
     Indication: Follicular lymphoma
     Dosage: UNK
     Route: 065
     Dates: start: 20170420

REACTIONS (2)
  - Hepatitis [Recovering/Resolving]
  - Hepatitis B reactivation [Recovering/Resolving]

NARRATIVE: CASE EVENT DATE: 20170511
